FAERS Safety Report 16382121 (Version 2)
Quarter: 2019Q2

REPORT INFORMATION
  Report Type: Spontaneous
  Country: US (occurrence: US)
  Receive Date: 20190603
  Receipt Date: 20190620
  Transmission Date: 20190711
  Serious: Yes (Other)
  Sender: FDA-Public Use
  Company Number: US-ASTELLAS-2019US022281

PATIENT
  Age: 78 Year
  Sex: Male

DRUGS (3)
  1. BABY ASPIRIN [Concomitant]
     Active Substance: ASPIRIN
     Indication: PRODUCT USED FOR UNKNOWN INDICATION
     Dosage: UNK UNK, UNKNOWN FREQ.
     Route: 065
  2. MYRBETRIQ [Suspect]
     Active Substance: MIRABEGRON
     Indication: HYPERTONIC BLADDER
     Route: 065
     Dates: start: 20190521, end: 20190521
  3. MYRBETRIQ [Suspect]
     Active Substance: MIRABEGRON
     Indication: INCONTINENCE

REACTIONS (9)
  - Drug ineffective [Unknown]
  - Seasonal allergy [Unknown]
  - Nasopharyngitis [Unknown]
  - Pyrexia [Unknown]
  - Hypersensitivity [Unknown]
  - Cough [Not Recovered/Not Resolved]
  - Chest discomfort [Unknown]
  - Sinus disorder [Not Recovered/Not Resolved]
  - Rhinorrhoea [Unknown]

NARRATIVE: CASE EVENT DATE: 20190521
